FAERS Safety Report 9171789 (Version 1)
Quarter: 2013Q1

REPORT INFORMATION
  Report Type: Spontaneous
  Country: US (occurrence: None)
  Receive Date: 20130311
  Receipt Date: 20130311
  Transmission Date: 20140127
  Serious: Yes (Hospitalization)
  Sender: FDA-Public Use
  Company Number: 2013034949

PATIENT
  Sex: Female

DRUGS (4)
  1. IMMUNE GLOBULIN HUMAN [Suspect]
  2. VERAPAMIL (VERAPAMIL) [Concomitant]
  3. FUROSEMIDE (FUROSEMIDE) [Concomitant]
  4. PREDNISONE (PREDDNISONE) [Concomitant]

REACTIONS (4)
  - Off label use [None]
  - Pyoderma gangrenosum [None]
  - Condition aggravated [None]
  - Renal failure acute [None]
